FAERS Safety Report 9656664 (Version 3)
Quarter: 2014Q2

REPORT INFORMATION
  Report Type: Spontaneous
  Country: DK (occurrence: CA)
  Receive Date: 20131030
  Receipt Date: 20140612
  Transmission Date: 20141212
  Serious: Yes (Life-Threatening, Hospitalization)
  Sender: FDA-Public Use
  Company Number: CA-FRI-1000050618

PATIENT
  Sex: Female

DRUGS (3)
  1. CELEXA [Suspect]
     Dosage: DAILY DOSE NOT REPORTED.
     Route: 048
  2. CYMBALTA [Suspect]
     Dosage: DAILY DOSE NOT REPORTED.
     Route: 048
  3. HUMIRA [Suspect]
     Indication: PSORIATIC ARTHROPATHY
     Dosage: 2.8571 MG
     Route: 058
     Dates: start: 20120816, end: 20121019

REACTIONS (4)
  - Suicide attempt [Unknown]
  - Suicidal ideation [Unknown]
  - Depression [Unknown]
  - Drug interaction [Unknown]
